FAERS Safety Report 19194331 (Version 1)
Quarter: 2021Q2

REPORT INFORMATION
  Report Type: Spontaneous
  Country: US (occurrence: US)
  Receive Date: 20210429
  Receipt Date: 20210429
  Transmission Date: 20210717
  Serious: Yes (Other)
  Sender: FDA-Public Use
  Company Number: US-DRREDDYS-USA/USA/21/0134965

PATIENT
  Age: 3 Month
  Sex: Male

DRUGS (4)
  1. LEVETIRACETAM. [Suspect]
     Active Substance: LEVETIRACETAM
     Indication: SEIZURE
  2. PHENOBARBITAL. [Suspect]
     Active Substance: PHENOBARBITAL
     Indication: SEIZURE
  3. FOSPHENYTOIN SODIUM. [Suspect]
     Active Substance: FOSPHENYTOIN SODIUM
     Indication: SEIZURE
  4. VERSED [Suspect]
     Active Substance: MIDAZOLAM HYDROCHLORIDE
     Indication: SEIZURE

REACTIONS (1)
  - Drug ineffective [Unknown]
